FAERS Safety Report 6556853-4 (Version None)
Quarter: 2010Q1

REPORT INFORMATION
  Report Type: 
  Country: None (occurrence: None)
  Receive Date: 20100128
  Receipt Date: 20100122
  Transmission Date: 20100710
  Serious: Yes (Hospitalization)
  Sender: FDA-Public Use
  Company Number: PHHO2010US00579

PATIENT
  Sex: Male
  Weight: 100.23 kg

DRUGS (6)
  1. AFINITOR [Suspect]
     Indication: GLIOBLASTOMA MULTIFORME
     Dosage: 10 MG, QD
     Route: 048
     Dates: start: 20091110, end: 20100105
  2. AFINITOR [Suspect]
     Dosage: 5 MG, QD
     Route: 048
     Dates: start: 20100106
  3. AVASTIN [Suspect]
     Indication: GLIOBLASTOMA MULTIFORME
     Dosage: 1039 MG Q 14 DAYS
     Route: 042
     Dates: start: 20090902
  4. TEMOZOLOMIDE [Suspect]
     Indication: GLIOBLASTOMA MULTIFORME
     Dosage: 180 MG PO QD
     Route: 048
     Dates: start: 20090902, end: 20091014
  5. DEXAMETHASONE [Concomitant]
     Dosage: 2 MG, BID
     Route: 048
     Dates: start: 20090804, end: 20100106
  6. DEXAMETHASONE [Concomitant]
     Dosage: 2 MG, QD
     Route: 048
     Dates: start: 20100107, end: 20100111

REACTIONS (4)
  - DEEP VEIN THROMBOSIS [None]
  - OEDEMA PERIPHERAL [None]
  - PULMONARY EMBOLISM [None]
  - VENA CAVA FILTER INSERTION [None]
